FAERS Safety Report 19184269 (Version 1)
Quarter: 2021Q2

REPORT INFORMATION
  Report Type: Spontaneous
  Country: US (occurrence: US)
  Receive Date: 20210426
  Receipt Date: 20210426
  Transmission Date: 20210717
  Serious: No
  Sender: FDA-Public Use
  Company Number: None

PATIENT
  Age: 55 Year
  Sex: Female

DRUGS (1)
  1. VERZENIO [Suspect]
     Active Substance: ABEMACICLIB
     Indication: BREAST CANCER
     Route: 048
     Dates: start: 202104

REACTIONS (6)
  - Nausea [None]
  - Vomiting [None]
  - Decreased appetite [None]
  - Somnolence [None]
  - Intentional dose omission [None]
  - White blood cell count decreased [None]

NARRATIVE: CASE EVENT DATE: 20210426
